FAERS Safety Report 12090940 (Version 2)
Quarter: 2018Q1

REPORT INFORMATION
  Report Type: Report from Study
  Country: US (occurrence: US)
  Receive Date: 20160218
  Receipt Date: 20180329
  Transmission Date: 20180508
  Serious: Yes (Other)
  Sender: FDA-Public Use
  Company Number: PHHY2014US084814

PATIENT
  Age: 58 Year
  Sex: Male

DRUGS (1)
  1. GILENYA [Suspect]
     Active Substance: FINGOLIMOD HYDROCHLORIDE
     Indication: MULTIPLE SCLEROSIS
     Dosage: QD
     Route: 048

REACTIONS (7)
  - Hypertension [Unknown]
  - Basal cell carcinoma [Recovered/Resolved]
  - Dyspnoea [Recovered/Resolved]
  - Low density lipoprotein increased [Unknown]
  - Visual impairment [Unknown]
  - Tunnel vision [Recovered/Resolved]
  - Blood cholesterol increased [Unknown]

NARRATIVE: CASE EVENT DATE: 20140304
